FAERS Safety Report 19193559 (Version 2)
Quarter: 2021Q2

REPORT INFORMATION
  Report Type: Spontaneous
  Country: AR (occurrence: AR)
  Receive Date: 20210429
  Receipt Date: 20210511
  Transmission Date: 20210717
  Serious: Yes (Other)
  Sender: FDA-Public Use
  Company Number: AR-AMGEN-ARGSP2021063947

PATIENT
  Age: 67 Year
  Sex: Female

DRUGS (3)
  1. ENBREL [Suspect]
     Active Substance: ETANERCEPT
     Indication: RHEUMATOID ARTHRITIS
     Dosage: 50 MG, WEEKLY
     Route: 065
     Dates: start: 20110805
  2. ENBREL [Suspect]
     Active Substance: ETANERCEPT
     Dosage: 50 MG, MODIFYING FREQUENCY
     Route: 065
     Dates: end: 20210329
  3. TOZINAMERAN. [Suspect]
     Active Substance: TOZINAMERAN
     Indication: COVID-19 IMMUNISATION
     Dosage: UNKNOWN, SINGLE
     Route: 065
     Dates: start: 202104, end: 202104

REACTIONS (3)
  - Intentional product misuse [Unknown]
  - Hypersensitivity [Not Recovered/Not Resolved]
  - Diabetes mellitus [Not Recovered/Not Resolved]
